FAERS Safety Report 20575456 (Version 1)
Quarter: 2022Q1

REPORT INFORMATION
  Report Type: Report from Study
  Country: CO (occurrence: CO)
  Receive Date: 20220310
  Receipt Date: 20220310
  Transmission Date: 20220423
  Serious: Yes (Hospitalization)
  Sender: FDA-Public Use
  Company Number: CO-UCBSA-2022013482

PATIENT
  Age: 83 Year
  Sex: Female

DRUGS (3)
  1. ROTIGOTINE [Suspect]
     Active Substance: ROTIGOTINE
     Indication: Parkinson^s disease
     Dosage: 4 MILLIGRAM, ONCE DAILY (QD)
     Route: 062
     Dates: start: 20201027, end: 20220115
  2. CARBIDOPA\LEVODOPA [Concomitant]
     Active Substance: CARBIDOPA\LEVODOPA
     Indication: Parkinson^s disease
     Dosage: 25/250 MILLIGRAM
     Route: 048
  3. BIPERIDENO [BIPERIDEN] [Concomitant]
     Indication: Parkinson^s disease
     Dosage: 2 MILLIGRAM
     Route: 048

REACTIONS (3)
  - Hallucination [Recovered/Resolved]
  - Restlessness [Recovered/Resolved]
  - Fall [Recovered/Resolved]

NARRATIVE: CASE EVENT DATE: 20211120
